FAERS Safety Report 24259646 (Version 1)
Quarter: 2024Q3

REPORT INFORMATION
  Report Type: Spontaneous
  Country: US (occurrence: US)
  Receive Date: 20240828
  Receipt Date: 20240828
  Transmission Date: 20241016
  Serious: No
  Sender: BRISTOL MYERS SQUIBB
  Company Number: US-BRISTOL-MYERS SQUIBB COMPANY-2024-136514

PATIENT
  Age: 59 Year
  Sex: Female

DRUGS (1)
  1. POMALYST [Suspect]
     Active Substance: POMALIDOMIDE
     Indication: Monoclonal gammopathy
     Route: 048
     Dates: start: 202408

REACTIONS (3)
  - Fatigue [Unknown]
  - Constipation [Unknown]
  - Off label use [Unknown]
